FAERS Safety Report 26159366 (Version 1)
Quarter: 2025Q4

REPORT INFORMATION
  Report Type: Spontaneous
  Country: US (occurrence: None)
  Receive Date: 20251216
  Receipt Date: 20251216
  Transmission Date: 20260118
  Serious: No
  Sender: UCB
  Company Number: US-UCBSA-2025059226

PATIENT

DRUGS (2)
  1. BIMZELX [Suspect]
     Active Substance: BIMEKIZUMAB-BKZX
     Indication: Gastrooesophageal reflux disease
     Dosage: 320 MILLIGRAM, EV 2 WEEKS(QOW)
  2. BIMZELX [Suspect]
     Active Substance: BIMEKIZUMAB-BKZX
     Indication: Off label use

REACTIONS (6)
  - Gastrooesophageal reflux disease [Unknown]
  - Condition aggravated [Unknown]
  - Pain [Unknown]
  - Rash [Unknown]
  - Drug ineffective for unapproved indication [Unknown]
  - Off label use [Unknown]
